FAERS Safety Report 18205201 (Version 4)
Quarter: 2020Q4

REPORT INFORMATION
  Report Type: Report from Study
  Country: EG (occurrence: EG)
  Receive Date: 20200828
  Receipt Date: 20201105
  Transmission Date: 20210113
  Serious: Yes (Other)
  Sender: FDA-Public Use
  Company Number: EG-REGENERON PHARMACEUTICALS, INC.-2020-72724

PATIENT

DRUGS (7)
  1. ISOPTIN RR [Concomitant]
     Active Substance: VERAPAMIL HYDROCHLORIDE
     Indication: HYPERTENSION
     Dosage: 240 MG, OM
     Route: 048
     Dates: start: 2019
  2. EYLEA [Suspect]
     Active Substance: AFLIBERCEPT
     Indication: MACULAR OEDEMA
     Dosage: THE PATIENT TOOK 3 INJECTIONS IN THE LEFT EYE -THE 1ST ONE WAS IN JUL OR AUG-2018, THE 2ND ONE WAS A
     Route: 031
     Dates: start: 2018, end: 2020
  3. CORTISONE [Concomitant]
     Active Substance: CORTISONE
     Indication: RENAL TRANSPLANT
     Dosage: 10 MG, QD - 2 TABLETS DAILY
     Route: 048
     Dates: start: 2002
  4. CONCOR [Concomitant]
     Active Substance: BISOPROLOL FUMARATE
     Indication: HYPERTENSION
     Dosage: 5 MG, HS - ONE TABLET DAILY (AT NIGHT)
     Route: 048
     Dates: start: 2019
  5. SANDIMMUN [Concomitant]
     Active Substance: CYCLOSPORINE
     Indication: RENAL TRANSPLANT
     Dosage: 50 MG, BID - 1 TABLET TWICE DAILY (AT MORNING - AT NIGHT)
     Route: 048
     Dates: start: 2002
  6. MYFORTIC [Concomitant]
     Active Substance: MYCOPHENOLATE SODIUM
     Indication: RENAL TRANSPLANT
     Dosage: 3 DF, BID - 6 TABLETS DAILY (3 AT MORNING - 3 AT NIGHT)
     Route: 048
     Dates: start: 2002
  7. NEVANAC [Concomitant]
     Active Substance: NEPAFENAC
     Indication: MACULAR OEDEMA
     Dosage: UNK UNK, QID
     Route: 047

REACTIONS (4)
  - Inappropriate schedule of product administration [Unknown]
  - Visual impairment [Unknown]
  - Retinal fibrosis [Not Recovered/Not Resolved]
  - Drug ineffective [Not Recovered/Not Resolved]

NARRATIVE: CASE EVENT DATE: 2018
